FAERS Safety Report 25539999 (Version 1)
Quarter: 2025Q3

REPORT INFORMATION
  Report Type: Spontaneous
  Country: EU (occurrence: EU)
  Receive Date: 20250710
  Receipt Date: 20250710
  Transmission Date: 20251020
  Serious: Yes (Hospitalization)
  Sender: ELI LILLY AND COMPANY
  Company Number: EU-ELI_LILLY_AND_COMPANY-FR202507001234

PATIENT
  Age: 79 Year
  Sex: Male

DRUGS (8)
  1. GEMZAR [Suspect]
     Active Substance: GEMCITABINE HYDROCHLORIDE
     Indication: Transitional cell carcinoma metastatic
     Route: 065
     Dates: start: 202210
  2. GEMZAR [Suspect]
     Active Substance: GEMCITABINE HYDROCHLORIDE
     Route: 065
     Dates: start: 20240926, end: 20241128
  3. CARBOPLATIN [Suspect]
     Active Substance: CARBOPLATIN
     Indication: Transitional cell carcinoma metastatic
     Route: 065
     Dates: start: 202210
  4. CARBOPLATIN [Suspect]
     Active Substance: CARBOPLATIN
     Route: 065
     Dates: start: 20240926, end: 20241128
  5. TELMISARTAN [Concomitant]
     Active Substance: TELMISARTAN
     Indication: Product used for unknown indication
  6. ROSUVASTATIN [Concomitant]
     Active Substance: ROSUVASTATIN
     Indication: Product used for unknown indication
  7. AVELUMAB [Concomitant]
     Active Substance: AVELUMAB
     Indication: Adenocarcinoma of colon
     Route: 065
     Dates: start: 20230209
  8. AVELUMAB [Concomitant]
     Active Substance: AVELUMAB
     Route: 065
     Dates: start: 20230411

REACTIONS (1)
  - Anaemia folate deficiency [Recovered/Resolved]

NARRATIVE: CASE EVENT DATE: 20241105
